FAERS Safety Report 5414916-0 (Version None)
Quarter: 2007Q3

REPORT INFORMATION
  Report Type: 
  Country: None (occurrence: None)
  Receive Date: 20070815
  Receipt Date: 20070803
  Transmission Date: 20080115
  Serious: Yes (Hospitalization)
  Sender: FDA-Public Use
  Company Number: HQWYE399506AUG07

PATIENT
  Sex: Female

DRUGS (24)
  1. SIROLIMUS [Suspect]
     Indication: PROPHYLAXIS AGAINST TRANSPLANT REJECTION
     Route: 048
     Dates: start: 20040819, end: 20060623
  2. TACROLIMUS [Suspect]
     Indication: PROPHYLAXIS AGAINST TRANSPLANT REJECTION
     Route: 048
     Dates: start: 20060623
  3. PREDNISONE TAB [Suspect]
     Indication: PROPHYLAXIS AGAINST TRANSPLANT REJECTION
     Route: 048
     Dates: start: 20040305
  4. MYCELEX [Concomitant]
     Dosage: UNKNOWN
     Route: 065
     Dates: start: 20040305
  5. BACTRIM [Concomitant]
     Dosage: UNKNOWN
     Route: 065
     Dates: start: 20040305
  6. PROTONIX [Concomitant]
     Dosage: UNKNOWN
     Route: 065
     Dates: start: 20040202
  7. LASIX [Concomitant]
     Dosage: UNKNOWN
     Route: 065
     Dates: start: 20040813
  8. LIPITOR [Concomitant]
     Dosage: UNKNOWN
     Route: 065
     Dates: start: 20040603
  9. AVANDIA [Concomitant]
     Dosage: UNKNOWN
     Route: 065
     Dates: start: 20041115
  10. NORVASC [Concomitant]
     Dosage: UNKNOWN
     Route: 065
     Dates: start: 20040202
  11. CLONIDINE [Concomitant]
     Dosage: UNKNOWN
     Route: 065
     Dates: start: 20040315
  12. ASPIRIN [Concomitant]
     Dosage: UNKNOWN
     Route: 065
     Dates: start: 20050119
  13. MULTI-VITAMINS [Concomitant]
     Dosage: UNKNOWN
     Route: 065
     Dates: start: 20040119
  14. PERCOCET [Concomitant]
     Dosage: UNKNOWN
     Route: 065
     Dates: start: 20030410
  15. COUMADIN [Concomitant]
     Dosage: UNKNOWN
     Route: 065
     Dates: start: 20050624
  16. PLAVIX [Concomitant]
     Dosage: UNKNOWN
     Route: 065
  17. POTASSIUM CHLORIDE [Concomitant]
     Dosage: UNKNOWN
     Route: 065
     Dates: start: 20050725
  18. PAXIL [Concomitant]
     Dosage: UNKNOWN
     Route: 065
     Dates: start: 20040615
  19. METOPROLOL SUCCINATE [Concomitant]
     Dosage: UNKNOWN
     Route: 065
     Dates: start: 20050927
  20. SENNA [Concomitant]
     Dosage: UNKNOWN
     Route: 065
     Dates: start: 20050615
  21. TOPRAL [Concomitant]
     Dosage: UNKNOWN
     Route: 065
     Dates: start: 20050927
  22. K-DUR 10 [Concomitant]
     Dosage: UNKNOWN
     Route: 065
     Dates: start: 20060415
  23. TOPROL-XL [Concomitant]
     Dosage: UNKNOWN
     Route: 065
     Dates: start: 20050927
  24. MYCOPHENOLATE MOFETIL [Concomitant]
     Indication: PROPHYLAXIS AGAINST TRANSPLANT REJECTION
     Route: 048
     Dates: start: 20040305

REACTIONS (6)
  - ABDOMINAL PAIN [None]
  - CELLULITIS [None]
  - CHEST PAIN [None]
  - DIABETIC GASTROPARESIS [None]
  - GASTRITIS [None]
  - PNEUMONIA [None]
